FAERS Safety Report 22158577 (Version 1)
Quarter: 2023Q1

REPORT INFORMATION
  Report Type: Spontaneous
  Country: US (occurrence: US)
  Receive Date: 20230331
  Receipt Date: 20230331
  Transmission Date: 20230417
  Serious: No
  Sender: FDA-Public Use
  Company Number: US-BRISTOL-MYERS SQUIBB COMPANY-2023-046290

PATIENT
  Age: 40 Year
  Sex: Male

DRUGS (2)
  1. OPDIVO [Suspect]
     Active Substance: NIVOLUMAB
     Indication: Testis cancer
     Dosage: DOSE : PLEASE SEE DESCRIBE EVENT;     FREQ : PLEASE SEE DESCRIBE EVENT
  2. YERVOY [Suspect]
     Active Substance: IPILIMUMAB
     Indication: Testis cancer

REACTIONS (2)
  - Adverse event [Unknown]
  - Off label use [Unknown]

NARRATIVE: CASE EVENT DATE: 20230329
